FAERS Safety Report 8500323-0 (Version None)
Quarter: 2012Q3

REPORT INFORMATION
  Report Type: 
  Country: None (occurrence: None)
  Receive Date: 20120710
  Receipt Date: 20120703
  Transmission Date: 20120928
  Serious: No
  Sender: FDA-Public Use
  Company Number: US-ASTRAZENECA-2012SE03054

PATIENT
  Age: 55 Year
  Sex: Male

DRUGS (2)
  1. NEXIUM [Concomitant]
  2. CRESTOR [Suspect]
     Route: 048

REACTIONS (5)
  - ADVERSE EVENT [None]
  - MUSCULOSKELETAL PAIN [None]
  - PAIN IN EXTREMITY [None]
  - MUSCULOSKELETAL STIFFNESS [None]
  - DRUG DOSE OMISSION [None]
